FAERS Safety Report 9240129 (Version 1)
Quarter: 2013Q2

REPORT INFORMATION
  Report Type: Spontaneous
  Country: None (occurrence: CA)
  Receive Date: 20130418
  Receipt Date: 20130418
  Transmission Date: 20140414
  Serious: Yes (Hospitalization, Other)
  Sender: FDA-Public Use
  Company Number: CA-TEVA-398933USA

PATIENT
  Age: 61 Year
  Sex: Male
  Weight: 122.58 kg

DRUGS (6)
  1. TREANDA [Suspect]
     Dosage: EVERY 4 WEEKS
     Route: 042
  2. RITUXIMAB [Suspect]
     Dosage: EVERY 4 WEEKS
     Route: 042
  3. RITUXIMAB [Suspect]
     Dosage: EVERY 4 WEEKS
     Route: 042
  4. ACETAMINOPHEN [Concomitant]
  5. DIPHENHYDRAMINE [Concomitant]
  6. METHYLPREDNISOLONE NOS [Concomitant]

REACTIONS (10)
  - Depressed level of consciousness [Not Recovered/Not Resolved]
  - Flushing [Not Recovered/Not Resolved]
  - Hypertension [Not Recovered/Not Resolved]
  - Cellulitis [Not Recovered/Not Resolved]
  - Chest discomfort [Not Recovered/Not Resolved]
  - Chills [Not Recovered/Not Resolved]
  - Febrile neutropenia [Not Recovered/Not Resolved]
  - Infusion related reaction [Not Recovered/Not Resolved]
  - Nasopharyngitis [Not Recovered/Not Resolved]
  - Pyrexia [Not Recovered/Not Resolved]
